FAERS Safety Report 22003397 (Version 1)
Quarter: 2023Q1

REPORT INFORMATION
  Report Type: Spontaneous
  Country: US (occurrence: US)
  Receive Date: 20230217
  Receipt Date: 20230217
  Transmission Date: 20230418
  Serious: No
  Sender: FDA-Public Use
  Company Number: US-ALKEM LABORATORIES LIMITED-US-ALKEM-2022-09084

PATIENT
  Age: 72 Year
  Sex: Male

DRUGS (1)
  1. SILVER SULFADIAZINE [Suspect]
     Active Substance: SILVER SULFADIAZINE
     Indication: Wound
     Dosage: UNK, BID
     Route: 061
     Dates: start: 20220725, end: 20220810

REACTIONS (2)
  - Skin discolouration [Not Recovered/Not Resolved]
  - Product prescribing issue [Unknown]

NARRATIVE: CASE EVENT DATE: 20220809
